FAERS Safety Report 5379881-3 (Version None)
Quarter: 2007Q3

REPORT INFORMATION
  Report Type: 
  Country: None (occurrence: None)
  Receive Date: 20070703
  Receipt Date: 20070622
  Transmission Date: 20080115
  Serious: Yes (Life-Threatening, Hospitalization)
  Sender: FDA-Public Use
  Company Number: GXKR2007GB05390

PATIENT
  Age: 80 Year

DRUGS (2)
  1. CITALOPRAM HYDROBROMIDE [Suspect]
     Dosage: 20 MG, QD
     Dates: start: 20070509, end: 20070607
  2. MIRTAZAPINE [Suspect]
     Dosage: 30 MG, ORAL
     Route: 048
     Dates: start: 20070514

REACTIONS (7)
  - ANOREXIA [None]
  - DIARRHOEA [None]
  - DRUG INTERACTION [None]
  - HEPATITIS [None]
  - HEPATOTOXICITY [None]
  - LIVER FUNCTION TEST ABNORMAL [None]
  - VOMITING [None]
